FAERS Safety Report 5468445-9 (Version None)
Quarter: 2007Q3

REPORT INFORMATION
  Report Type: 
  Country: None (occurrence: None)
  Receive Date: 20070926
  Receipt Date: 20070924
  Transmission Date: 20080115
  Serious: Yes (Other)
  Sender: FDA-Public Use
  Company Number: US-BRISTOL-MYERS SQUIBB COMPANY-13918263

PATIENT
  Age: 14 Year
  Sex: Female

DRUGS (4)
  1. METHOTREXATE [Suspect]
     Indication: BONE SARCOMA
     Dosage: 12G/M2 OVER 4 HRS
     Route: 042
  2. CISPLATIN [Interacting]
     Indication: BONE SARCOMA
  3. DOXORUBICIN HCL [Interacting]
     Indication: BONE SARCOMA
  4. IODINIZED CONTRAST MEDIA [Interacting]

REACTIONS (12)
  - ABDOMINAL MASS [None]
  - BLOOD CREATININE INCREASED [None]
  - DRUG INTERACTION [None]
  - HEPATIC ENZYME INCREASED [None]
  - HERPES SIMPLEX [None]
  - HYPERTENSION [None]
  - HYPOTENSION [None]
  - LUNG INFILTRATION [None]
  - MUCOSAL INFLAMMATION [None]
  - PYREXIA [None]
  - RENAL FAILURE [None]
  - VOMITING [None]
